FAERS Safety Report 4885926-7 (Version None)
Quarter: 2006Q1

REPORT INFORMATION
  Report Type: 
  Country: None (occurrence: None)
  Receive Date: 20060118
  Receipt Date: 20060105
  Transmission Date: 20060701
  Serious: Yes (Other)
  Sender: FDA-Public Use
  Company Number: US200511002366

PATIENT
  Age: 63 Year
  Sex: Female
  Weight: 67.6 kg

DRUGS (21)
  1. FORTEO [Suspect]
     Indication: OSTEOPOROSIS
     Dosage: 20 UG/DAY, DAILY (1/D)
     Dates: start: 20051118, end: 20051119
  2. FORTEO PEN (FORTEO PEN) PEN, DISPOSABLE [Concomitant]
  3. LOPRESSOR [Concomitant]
  4. PRILOSEC [Concomitant]
  5. BETAMETHASONE [Concomitant]
  6. CONJUGATED ESTROGENS [Concomitant]
  7. PLAVIX [Concomitant]
  8. SIMVASTATIN [Concomitant]
  9. SALBUTAMOL (SALBUTAMOL) [Concomitant]
  10. ZANTAC [Concomitant]
  11. SYNTHROID [Concomitant]
  12. FLOVENT [Concomitant]
  13. COMBIVENT [Concomitant]
  14. POTASSIUM CHLORIDE [Concomitant]
  15. ASPIRIN [Concomitant]
  16. VIACTIV (CALCIUM) [Concomitant]
  17. FOLIC ACID [Concomitant]
  18. NITROGLYCERIN [Concomitant]
  19. ERGOCALCIFEROL (VITAMIN D) (ERGOCALCIFEROL (VITAMIN D)) [Concomitant]
  20. LORAZEPAM [Concomitant]
  21. VAGIFEM [Concomitant]

REACTIONS (4)
  - EYELID FUNCTION DISORDER [None]
  - HYPOAESTHESIA [None]
  - HYPOAESTHESIA ORAL [None]
  - PALPITATIONS [None]
